FAERS Safety Report 11569302 (Version 3)
Quarter: 2016Q1

REPORT INFORMATION
  Report Type: Report from Study
  Country: BE (occurrence: BE)
  Receive Date: 20150929
  Receipt Date: 20160203
  Transmission Date: 20160525
  Serious: Yes (Life-Threatening)
  Sender: FDA-Public Use
  Company Number: BE-CELGENE-BEL-2015094047

PATIENT
  Age: 69 Year
  Sex: Male
  Weight: 61 kg

DRUGS (8)
  1. AZACITIDINE. [Suspect]
     Active Substance: AZACITIDINE
     Indication: MYELODYSPLASTIC SYNDROME
     Route: 058
     Dates: start: 20150413, end: 20150817
  2. DLI [Suspect]
     Active Substance: LYMPHOCYTES
     Indication: ACUTE MYELOID LEUKAEMIA
     Dosage: 1X10EXP6CD3+ CELLS/KG BODY
     Route: 065
     Dates: start: 20150415
  3. BACTRIM [Concomitant]
     Active Substance: SULFAMETHOXAZOLE\TRIMETHOPRIM
     Indication: INFECTION PROPHYLAXIS
     Dosage: 20 MILLIGRAM
     Route: 065
  4. AZACITIDINE. [Suspect]
     Active Substance: AZACITIDINE
     Indication: ACUTE MYELOID LEUKAEMIA
     Route: 058
     Dates: start: 20150316, end: 20150320
  5. DLI [Suspect]
     Active Substance: LYMPHOCYTES
     Indication: MYELODYSPLASTIC SYNDROME
     Dosage: 5.53X10EXP6CD3+ CELLS/KG BODY
     Route: 065
     Dates: start: 20150616
  6. DLI [Suspect]
     Active Substance: LYMPHOCYTES
     Dosage: 1X10EXP7CD3+ CELLS/KG BODY
     Route: 065
     Dates: start: 20150812
  7. PANTOMED [Concomitant]
     Active Substance: DEXPANTHENOL
     Indication: PROPHYLAXIS AGAINST GASTROINTESTINAL ULCER
     Dosage: 20 MILLILITER
     Route: 065
  8. NOXAFIL [Concomitant]
     Active Substance: POSACONAZOLE
     Indication: INFECTION PROPHYLAXIS
     Route: 065

REACTIONS (3)
  - Pneumonia [Recovered/Resolved]
  - Septic shock [None]
  - Neutropenia [None]

NARRATIVE: CASE EVENT DATE: 20150913
